FAERS Safety Report 7820291-4 (Version None)
Quarter: 2011Q4

REPORT INFORMATION
  Report Type: 
  Country: None (occurrence: None)
  Receive Date: 20111012
  Receipt Date: 20110930
  Transmission Date: 20120403
  Serious: Yes (Other)
  Sender: FDA-Public Use
  Company Number: 2011SP046487

PATIENT
  Age: 64 Year
  Sex: Female
  Weight: 64 kg

DRUGS (2)
  1. RIBAVIRIN [Suspect]
     Indication: HEPATITIS C
     Dosage: QD;PO
     Route: 048
     Dates: start: 20100901, end: 20110901
  2. PEG-INTRON [Suspect]
     Indication: HEPATITIS C
     Dosage: QW;SC
     Route: 058
     Dates: start: 20100901, end: 20110920

REACTIONS (6)
  - VOMITING [None]
  - BALANCE DISORDER [None]
  - COORDINATION ABNORMAL [None]
  - MOTOR DYSFUNCTION [None]
  - ANXIETY [None]
  - DIARRHOEA [None]
